FAERS Safety Report 13515559 (Version 8)
Quarter: 2017Q4

REPORT INFORMATION
  Report Type: Spontaneous
  Country: US (occurrence: US)
  Receive Date: 20170504
  Receipt Date: 20171109
  Transmission Date: 20180320
  Serious: Yes (Hospitalization)
  Sender: FDA-Public Use
  Company Number: US-ACTELION-A-US2017-153273

PATIENT
  Age: 57 Year
  Sex: Female
  Weight: 84.35 kg

DRUGS (11)
  1. UPTRAVI [Suspect]
     Active Substance: SELEXIPAG
     Indication: PULMONARY ARTERIAL HYPERTENSION
     Dosage: 400 MCG, BID
     Route: 048
  2. WARFARIN [Concomitant]
     Active Substance: WARFARIN
  3. UPTRAVI [Suspect]
     Active Substance: SELEXIPAG
     Dosage: 800 MCG, BID
     Route: 048
  4. UPTRAVI [Suspect]
     Active Substance: SELEXIPAG
     Dosage: 1600 MCG, BID
     Route: 048
     Dates: start: 201706
  5. LETAIRIS [Suspect]
     Active Substance: AMBRISENTAN
     Indication: PULMONARY ARTERIAL HYPERTENSION
     Dosage: 10 MG, QD
     Route: 065
     Dates: start: 20150129
  6. COUMADIN [Concomitant]
     Active Substance: WARFARIN SODIUM
  7. UPTRAVI [Suspect]
     Active Substance: SELEXIPAG
     Dosage: 1000 MCG, BID
     Route: 048
     Dates: start: 20170511
  8. UPTRAVI [Suspect]
     Active Substance: SELEXIPAG
     Dosage: 1400 MCG, BID
     Route: 048
  9. UPTRAVI [Suspect]
     Active Substance: SELEXIPAG
     Dosage: 1200 MCG, BID
     Route: 048
  10. UPTRAVI [Suspect]
     Active Substance: SELEXIPAG
     Dosage: 600 MCG, BID
     Route: 048
  11. DILTIAZEM. [Concomitant]
     Active Substance: DILTIAZEM

REACTIONS (29)
  - Musculoskeletal pain [Recovering/Resolving]
  - Chest pain [Unknown]
  - Nausea [Unknown]
  - Oropharyngeal pain [Unknown]
  - Swelling face [Unknown]
  - Pharyngitis streptococcal [Unknown]
  - Cardiac disorder [Unknown]
  - Dyspnoea [Unknown]
  - Drug intolerance [Unknown]
  - Myalgia [Unknown]
  - Pain [Not Recovered/Not Resolved]
  - Back pain [Unknown]
  - Diarrhoea [Unknown]
  - Headache [Recovered/Resolved]
  - Ocular hyperaemia [Unknown]
  - Vomiting [Unknown]
  - Feeding disorder [Unknown]
  - Flushing [Unknown]
  - Condition aggravated [Unknown]
  - Feeling abnormal [Unknown]
  - Erythema [Unknown]
  - Weight increased [Unknown]
  - Weight decreased [Unknown]
  - Painful respiration [Unknown]
  - Tremor [Unknown]
  - Pain in jaw [Unknown]
  - Nervousness [Unknown]
  - Palpitations [Unknown]
  - Eye swelling [Unknown]
